FAERS Safety Report 10619007 (Version 2)
Quarter: 2014Q4

REPORT INFORMATION
  Report Type: Spontaneous
  Country: GB (occurrence: GB)
  Receive Date: 20141202
  Receipt Date: 20141202
  Transmission Date: 20150529
  Serious: Yes (Disabling, Other)
  Sender: FDA-Public Use
  Company Number: GB-AMGEN-GBRSP2014048187

PATIENT
  Age: 72 Year
  Sex: Female

DRUGS (10)
  1. LOPERAMIDE [Concomitant]
     Active Substance: LOPERAMIDE
     Dosage: 1 MG, UNK
     Route: 048
  2. SLOZEM [Concomitant]
     Active Substance: DILTIAZEM
     Dosage: 360 MG, UNK
  3. ACETAMINOPHEN. [Concomitant]
     Active Substance: ACETAMINOPHEN
     Dosage: 500 MG, UNK
     Dates: start: 201404
  4. IMODIUM [Concomitant]
     Active Substance: LOPERAMIDE HYDROCHLORIDE
     Indication: DIARRHOEA
     Dosage: 1 MG, QD
     Dates: start: 201404
  5. OXYBUTYNIN [Concomitant]
     Active Substance: OXYBUTYNIN
     Dosage: 5 MG, UNK
     Route: 048
  6. TRIMETHOPRIM. [Concomitant]
     Active Substance: TRIMETHOPRIM
     Indication: BLADDER PROLAPSE
     Dosage: 100 MG, UNK
     Route: 048
  7. PROLIA [Suspect]
     Active Substance: DENOSUMAB
     Indication: PRODUCT USED FOR UNKNOWN INDICATION
     Dosage: 60 MG, UNK
     Route: 058
     Dates: start: 20140425
  8. CANDESARTAN [Concomitant]
     Active Substance: CANDESARTAN
     Dosage: 32 MG, QD
     Dates: start: 201404
  9. PARACETAMOL [Concomitant]
     Active Substance: ACETAMINOPHEN
     Dosage: 1 G, 4 TIMES A DAY
     Dates: start: 201404
  10. NICORANDIL [Concomitant]
     Active Substance: NICORANDIL
     Dosage: 5 MG, UNK
     Route: 048

REACTIONS (12)
  - Paraesthesia [Recovering/Resolving]
  - Diverticulitis [Recovered/Resolved]
  - Tympanic membrane perforation [Recovering/Resolving]
  - Constipation [Unknown]
  - Arthralgia [Recovered/Resolved]
  - Diarrhoea [Recovering/Resolving]
  - Otorrhoea [Recovering/Resolving]
  - Pain in extremity [Recovered/Resolved]
  - Fatigue [Recovered/Resolved]
  - Urinary tract infection [Not Recovered/Not Resolved]
  - Malaise [Recovering/Resolving]
  - Coordination abnormal [Unknown]

NARRATIVE: CASE EVENT DATE: 20140502
